FAERS Safety Report 9046164 (Version 2)
Quarter: 2014Q3

REPORT INFORMATION
  Report Type: Report from Study
  Country: MX (occurrence: MX)
  Receive Date: 20130201
  Receipt Date: 20140725
  Transmission Date: 20150326
  Serious: Yes (Death, Other)
  Sender: FDA-Public Use
  Company Number: PHHY2013MX008925

PATIENT
  Age: 83 Year
  Sex: Male

DRUGS (1)
  1. CO-DIOVAN [Suspect]
     Active Substance: HYDROCHLOROTHIAZIDE\VALSARTAN
     Indication: HYPERTENSION
     Dosage: 1 DF, (160/12.5MG) DAILY
     Route: 048
     Dates: start: 200711

REACTIONS (4)
  - Myocardial infarction [Fatal]
  - Cardiovascular disorder [Unknown]
  - Cerebrovascular accident [Unknown]
  - Vein disorder [Unknown]

NARRATIVE: CASE EVENT DATE: 201209
